FAERS Safety Report 17042370 (Version 2)
Quarter: 2019Q4

REPORT INFORMATION
  Report Type: Spontaneous
  Country: RU (occurrence: RU)
  Receive Date: 20191118
  Receipt Date: 20191127
  Transmission Date: 20200122
  Serious: Yes (Hospitalization, Other)
  Sender: FDA-Public Use
  Company Number: RU-SA-2019SA314226

PATIENT
  Age: 52 Year
  Sex: Female
  Weight: 73 kg

DRUGS (3)
  1. AMARYL [Suspect]
     Active Substance: GLIMEPIRIDE
     Indication: TYPE 2 DIABETES MELLITUS
     Dosage: 2 DF, QD
     Route: 048
  2. GLURENORM [Concomitant]
     Active Substance: GLIQUIDONE
     Indication: TYPE 2 DIABETES MELLITUS
     Dosage: 30 MG, BID
     Route: 048
     Dates: start: 20191110
  3. PROTAPHANE [Concomitant]
     Active Substance: INSULIN HUMAN
     Indication: TYPE 2 DIABETES MELLITUS
     Dosage: 30 IU, QD 16IU (IN THE MORNING) + 14IU (IN THE EVENING)
     Route: 058
     Dates: start: 201910

REACTIONS (6)
  - Hypertension [Recovered/Resolved]
  - Dermatitis acneiform [Recovered/Resolved]
  - Dyspnoea [Recovered/Resolved]
  - Arrhythmia [Recovering/Resolving]
  - Heart rate increased [Recovered/Resolved]
  - Angina pectoris [Unknown]
